FAERS Safety Report 6798323-4 (Version None)
Quarter: 2010Q2

REPORT INFORMATION
  Report Type: 
  Country: None (occurrence: None)
  Receive Date: 20100622
  Receipt Date: 20100507
  Transmission Date: 20101027
  Serious: No
  Sender: FDA-Public Use
  Company Number: US-WYE-H15153610

PATIENT
  Age: 31 Year
  Sex: Female
  Weight: 72.64 kg

DRUGS (1)
  1. LYBREL [Suspect]
     Indication: ENDOMETRIOSIS
     Dosage: 1 TABLET 1X PER I DAY
     Dates: start: 20080101

REACTIONS (4)
  - DRUG INEFFECTIVE [None]
  - PAIN [None]
  - PRODUCT QUALITY ISSUE [None]
  - VAGINAL HAEMORRHAGE [None]
